FAERS Safety Report 6316035-8 (Version None)
Quarter: 2009Q3

REPORT INFORMATION
  Report Type: 
  Country: None (occurrence: None)
  Receive Date: 20090820
  Receipt Date: 20090812
  Transmission Date: 20100115
  Serious: Yes (Other)
  Sender: FDA-Public Use
  Company Number: US-JNJFOC-20060906187

PATIENT
  Sex: Female

DRUGS (3)
  1. RISPERDAL [Suspect]
     Indication: DEPRESSION
  2. REMERON [Concomitant]
  3. CELEXA [Concomitant]

REACTIONS (3)
  - BLUNTED AFFECT [None]
  - DIABETES MELLITUS [None]
  - DISTURBANCE IN ATTENTION [None]
